FAERS Safety Report 8563129-2 (Version None)
Quarter: 2012Q3

REPORT INFORMATION
  Report Type: 
  Country: None (occurrence: None)
  Receive Date: 20120802
  Receipt Date: 20120724
  Transmission Date: 20120928
  Serious: No
  Sender: FDA-Public Use
  Company Number: US-AMGEN-USASP2012046274

PATIENT
  Age: 49 Year
  Sex: Female

DRUGS (1)
  1. ENBREL [Suspect]
     Indication: RHEUMATOID ARTHRITIS
     Dosage: 50 MG, QWK
     Dates: start: 20120401

REACTIONS (7)
  - FALL [None]
  - CHEST DISCOMFORT [None]
  - NAUSEA [None]
  - COLD SWEAT [None]
  - VOMITING [None]
  - ANGINA PECTORIS [None]
  - DIZZINESS [None]
